FAERS Safety Report 5508912-2 (Version None)
Quarter: 2007Q4

REPORT INFORMATION
  Report Type: 
  Country: None (occurrence: None)
  Receive Date: 20071107
  Receipt Date: 20071023
  Transmission Date: 20080405
  Serious: Yes (Death)
  Sender: FDA-Public Use
  Company Number: US-JNJFOC-20071101425

PATIENT
  Age: 8 Month
  Sex: Female

DRUGS (5)
  1. FENTANYL [Suspect]
     Indication: ANAESTHESIA
     Route: 042
  2. ETOMIDATE [Suspect]
     Indication: ANAESTHESIA
     Route: 042
  3. ROCURONIUM BROMIDE [Concomitant]
     Indication: ANAESTHESIA
     Route: 042
  4. SEVOFLURANE [Concomitant]
     Indication: ANAESTHESIA
  5. NITROUS OXIDE [Concomitant]
     Indication: ANAESTHESIA

REACTIONS (3)
  - BLOOD PRESSURE DECREASED [None]
  - HEART RATE DECREASED [None]
  - VENTRICULAR FIBRILLATION [None]
